FAERS Safety Report 12537854 (Version 1)
Quarter: 2016Q3

REPORT INFORMATION
  Report Type: Spontaneous
  Country: US (occurrence: US)
  Receive Date: 20160707
  Receipt Date: 20160707
  Transmission Date: 20161109
  Serious: Yes (Hospitalization)
  Sender: FDA-Public Use
  Company Number: US-DSJP-DSU-2015-118407

PATIENT
  Age: 24 Year
  Sex: Male
  Weight: 142.86 kg

DRUGS (1)
  1. BENICAR HCT [Suspect]
     Active Substance: HYDROCHLOROTHIAZIDE\OLMESARTAN MEDOXOMIL
     Indication: HYPERTENSION
     Dosage: 40/12.5 MG
     Dates: start: 200603, end: 201011

REACTIONS (5)
  - Gastroenteritis viral [Unknown]
  - Constipation [Unknown]
  - Dizziness [Not Recovered/Not Resolved]
  - Malabsorption [Not Recovered/Not Resolved]
  - Irritable bowel syndrome [Not Recovered/Not Resolved]

NARRATIVE: CASE EVENT DATE: 20060728
